FAERS Safety Report 16792379 (Version 2)
Quarter: 2019Q3

REPORT INFORMATION
  Report Type: Spontaneous
  Country: CA (occurrence: CA)
  Receive Date: 20190910
  Receipt Date: 20190923
  Transmission Date: 20191005
  Serious: Yes (Other)
  Sender: FDA-Public Use
  Company Number: CA-TEVA-2019-CA-1105353

PATIENT
  Age: 51 Year
  Sex: Female

DRUGS (3)
  1. LAMOTRIGINE. [Suspect]
     Active Substance: LAMOTRIGINE
     Indication: BIPOLAR II DISORDER
     Dosage: 150 MILLIGRAM DAILY;
     Route: 065
  2. QUETIAPINE. [Concomitant]
     Active Substance: QUETIAPINE
     Dosage: 50 MILLIGRAM DAILY;
     Route: 065
  3. LITHIUM. [Concomitant]
     Active Substance: LITHIUM
     Dosage: 600 MILLIGRAM DAILY;
     Route: 065

REACTIONS (2)
  - Obsessive-compulsive disorder [Recovered/Resolved]
  - Off label use [Unknown]
